FAERS Safety Report 15028443 (Version 4)
Quarter: 2018Q3

REPORT INFORMATION
  Report Type: Spontaneous
  Country: US (occurrence: US)
  Receive Date: 20180619
  Receipt Date: 20180806
  Transmission Date: 20181010
  Serious: Yes (Hospitalization, Other)
  Sender: FDA-Public Use
  Company Number: US-GLAXOSMITHKLINE-US2018GSK108525

PATIENT
  Age: 84 Year
  Sex: Female

DRUGS (9)
  1. ANORO ELLIPTA [Suspect]
     Active Substance: UMECLIDINIUM BROMIDE\VILANTEROL TRIFENATATE
     Indication: BRONCHITIS
     Dosage: UNK
     Dates: start: 20180207, end: 20180216
  2. VENTOLIN [Suspect]
     Active Substance: ALBUTEROL SULFATE
     Indication: PRODUCT USED FOR UNKNOWN INDICATION
  3. MONTELUKAST [Suspect]
     Active Substance: MONTELUKAST SODIUM
     Indication: PRODUCT USED FOR UNKNOWN INDICATION
  4. TRELEGY ELLIPTA [Concomitant]
     Active Substance: FLUTICASONE FUROATE\UMECLIDINIUM BROMIDE\VILANTEROL TRIFENATATE
     Indication: BRONCHITIS
     Dosage: UNK
     Dates: start: 20180216
  5. BREO ELLIPTA [Suspect]
     Active Substance: FLUTICASONE FUROATE\VILANTEROL TRIFENATATE
     Indication: BRONCHITIS
     Dosage: UNK
     Dates: start: 20171113, end: 20171120
  6. SPIRIVA [Suspect]
     Active Substance: TIOTROPIUM BROMIDE MONOHYDRATE
     Indication: PRODUCT USED FOR UNKNOWN INDICATION
  7. QVAR [Concomitant]
     Active Substance: BECLOMETHASONE DIPROPIONATE
     Dosage: UNK
     Dates: end: 20171112
  8. BREO ELLIPTA [Suspect]
     Active Substance: FLUTICASONE FUROATE\VILANTEROL TRIFENATATE
     Indication: CHRONIC OBSTRUCTIVE PULMONARY DISEASE
     Dosage: UNK
     Dates: end: 20171204
  9. ALBUTEROL. [Suspect]
     Active Substance: ALBUTEROL
     Indication: PRODUCT USED FOR UNKNOWN INDICATION

REACTIONS (10)
  - Bronchitis [Unknown]
  - Condition aggravated [Unknown]
  - Productive cough [Recovered/Resolved]
  - Pneumonia [Unknown]
  - Product use in unapproved indication [Unknown]
  - Influenza like illness [Unknown]
  - Transient ischaemic attack [Unknown]
  - Chronic obstructive pulmonary disease [Unknown]
  - Cough [Recovered/Resolved]
  - Speech disorder [Unknown]

NARRATIVE: CASE EVENT DATE: 2017
